FAERS Safety Report 4316422-3 (Version None)
Quarter: 2004Q1

REPORT INFORMATION
  Report Type: 
  Country: None (occurrence: None)
  Receive Date: 20040312
  Receipt Date: 20040127
  Transmission Date: 20041129
  Serious: Yes (Other)
  Sender: FDA-Public Use
  Company Number: PHBS2004JP01491

PATIENT
  Age: 33 Year
  Sex: Female
  Weight: 62 kg

DRUGS (1)
  1. APRESOLINE [Suspect]
     Indication: PREGNANCY INDUCED HYPERTENSION
     Dosage: 60 MG/DAY
     Route: 048
     Dates: start: 20031018, end: 20040127

REACTIONS (7)
  - DRUG EXPOSURE DURING PREGNANCY [None]
  - ECLAMPSIA [None]
  - NORMAL NEWBORN [None]
  - PREMATURE BABY [None]
  - PRURITUS [None]
  - RASH [None]
  - URTICARIA GENERALISED [None]
